FAERS Safety Report 6289634-X (Version None)
Quarter: 2009Q3

REPORT INFORMATION
  Report Type: 
  Country: None (occurrence: None)
  Receive Date: 20090730
  Receipt Date: 19991005
  Transmission Date: 20100115
  Serious: No
  Sender: FDA-Public Use
  Company Number: 1999COU1137

PATIENT
  Age: 28 Year
  Sex: Female

DRUGS (1)
  1. COUMADIN [Suspect]
     Indication: VENOUS THROMBOSIS
     Dosage: 2.5 MG AES#DOSE_FREQUENCY: QD
     Route: 048
     Dates: start: 19990516, end: 19990630

REACTIONS (1)
  - PREGNANCY [None]
